FAERS Safety Report 4908188-0 (Version None)
Quarter: 2006Q1

REPORT INFORMATION
  Report Type: 
  Country: None (occurrence: None)
  Receive Date: 20060210
  Receipt Date: 20060130
  Transmission Date: 20060701
  Serious: Yes (Life-Threatening, Hospitalization)
  Sender: FDA-Public Use
  Company Number: CH-JNJFOC-20060200029

PATIENT
  Age: 63 Year
  Sex: Male

DRUGS (22)
  1. HALDOL [Suspect]
     Route: 048
     Dates: start: 20051213, end: 20051218
  2. HALDOL [Suspect]
     Route: 048
     Dates: start: 20051213, end: 20051218
  3. HALDOL [Suspect]
     Indication: DRUG USE FOR UNKNOWN INDICATION
     Route: 048
     Dates: start: 20051213, end: 20051218
  4. HALOPERIDOL DECANOATE [Suspect]
     Indication: DRUG USE FOR UNKNOWN INDICATION
     Route: 030
  5. FLUPHENAZINE DECANOATE [Concomitant]
     Indication: DRUG USE FOR UNKNOWN INDICATION
     Route: 030
     Dates: start: 20050121, end: 20051212
  6. NOZINAN [Concomitant]
     Route: 048
     Dates: start: 20050929, end: 20051217
  7. NOZINAN [Concomitant]
     Route: 048
     Dates: start: 20050929, end: 20051217
  8. NOZINAN [Concomitant]
     Route: 048
     Dates: start: 20050929, end: 20051217
  9. NOZINAN [Concomitant]
     Route: 048
     Dates: start: 20050929, end: 20051217
  10. NOZINAN [Concomitant]
     Indication: DRUG USE FOR UNKNOWN INDICATION
     Route: 048
     Dates: start: 20050929, end: 20051217
  11. DIAZEPAM [Concomitant]
     Indication: DRUG USE FOR UNKNOWN INDICATION
     Route: 048
     Dates: start: 20051215, end: 20051217
  12. OLANZAPINE [Concomitant]
     Route: 048
     Dates: start: 20051208, end: 20051222
  13. OLANZAPINE [Concomitant]
     Route: 048
     Dates: start: 20051208, end: 20051222
  14. OLANZAPINE [Concomitant]
     Indication: DRUG USE FOR UNKNOWN INDICATION
     Route: 048
     Dates: start: 20051208, end: 20051222
  15. AKINETON [Concomitant]
     Route: 048
  16. AKINETON [Concomitant]
     Route: 048
  17. AKINETON [Concomitant]
     Route: 048
  18. AKINETON [Concomitant]
     Route: 048
  19. AKINETON [Concomitant]
     Route: 048
  20. AKINETON [Concomitant]
     Indication: DRUG USE FOR UNKNOWN INDICATION
     Route: 048
  21. EPHYNAL [Concomitant]
     Indication: DRUG USE FOR UNKNOWN INDICATION
     Route: 048
     Dates: start: 20051206, end: 20051225
  22. BETOLVEX [Concomitant]
     Indication: DRUG USE FOR UNKNOWN INDICATION
     Route: 030

REACTIONS (15)
  - AGITATION [None]
  - BACTERIA URINE [None]
  - BLOOD CREATINE PHOSPHOKINASE INCREASED [None]
  - CATATONIA [None]
  - DISORIENTATION [None]
  - HYPERHIDROSIS [None]
  - HYPOKINESIA [None]
  - MICTURITION DISORDER [None]
  - MUSCLE RIGIDITY [None]
  - MUTISM [None]
  - PNEUMONIA [None]
  - PYREXIA [None]
  - RESTLESSNESS [None]
  - TACHYPNOEA [None]
  - TREMOR [None]
